FAERS Safety Report 24081177 (Version 1)
Quarter: 2024Q3

REPORT INFORMATION
  Report Type: Spontaneous
  Country: US (occurrence: US)
  Receive Date: 20240711
  Receipt Date: 20240711
  Transmission Date: 20241017
  Serious: No
  Sender: KRAMER LABORATORIES
  Company Number: US-KRAMERLABS-2023-US-042263

PATIENT
  Sex: Female

DRUGS (1)
  1. NIZORAL [Suspect]
     Active Substance: KETOCONAZOLE
     Indication: Product used for unknown indication
     Dosage: APPLIED 3 TIMES IN 1 MONTH
     Route: 061
     Dates: start: 20231112

REACTIONS (3)
  - Intentional product misuse [Unknown]
  - Dry skin [Unknown]
  - Drug ineffective [Unknown]
